FAERS Safety Report 17239517 (Version 2)
Quarter: 2020Q1

REPORT INFORMATION
  Report Type: Spontaneous
  Country: US (occurrence: US)
  Receive Date: 20200106
  Receipt Date: 20200204
  Transmission Date: 20200409
  Serious: No
  Sender: FDA-Public Use
  Company Number: US-ELI_LILLY_AND_COMPANY-US201912008640

PATIENT
  Age: 54 Year
  Sex: Female

DRUGS (9)
  1. LISINOPRIL. [Concomitant]
     Active Substance: LISINOPRIL
     Dosage: UNK, UNKNOWN
     Route: 065
  2. TOPAMAX [Concomitant]
     Active Substance: TOPIRAMATE
     Dosage: UNK, UNKNOWN
     Route: 065
  3. SUMATRIPTAN. [Concomitant]
     Active Substance: SUMATRIPTAN
     Dosage: UNK, PRN
     Route: 065
  4. EMGALITY [Suspect]
     Active Substance: GALCANEZUMAB-GNLM
     Indication: PRODUCT USED FOR UNKNOWN INDICATION
     Dosage: 1 DOSAGE FORM, UNKNOWN
     Route: 065
     Dates: start: 201903, end: 201911
  5. OMEPRAZOLE. [Concomitant]
     Active Substance: OMEPRAZOLE
     Dosage: UNK, UNKNOWN
     Route: 065
  6. FLONASE [Concomitant]
     Active Substance: FLUTICASONE PROPIONATE
     Dosage: UNK, UNKNOWN
  7. FIORINAL CODEINA [Concomitant]
     Dosage: UNK, PRN
     Route: 065
  8. MINOCYCLINE [Concomitant]
     Active Substance: MINOCYCLINE HYDROCHLORIDE
     Dosage: UNK, UNKNOWN
     Route: 065
  9. AMBIEN [Concomitant]
     Active Substance: ZOLPIDEM TARTRATE
     Dosage: UNK, UNKNOWN
     Route: 065

REACTIONS (2)
  - Raynaud^s phenomenon [Unknown]
  - Alopecia [Unknown]

NARRATIVE: CASE EVENT DATE: 201909
